FAERS Safety Report 9768910 (Version 1)
Quarter: 2013Q4

REPORT INFORMATION
  Report Type: Spontaneous
  Country: AU (occurrence: None)
  Receive Date: 20131216
  Receipt Date: 20131216
  Transmission Date: 20140711
  Serious: Yes (Death)
  Sender: FDA-Public Use
  Company Number: SYM-2013-13745

PATIENT
  Sex: 0

DRUGS (2)
  1. FLUOROURACIL [Suspect]
     Indication: ANAL CANCER
  2. THERAPEUTIC RADIOPHARMACEUTICALS [Suspect]
     Indication: ANAL CANCER

REACTIONS (2)
  - Toxicity to various agents [None]
  - Sudden death [None]
